FAERS Safety Report 22676621 (Version 5)
Quarter: 2024Q1

REPORT INFORMATION
  Report Type: Report from Study
  Country: DE (occurrence: DE)
  Receive Date: 20230706
  Receipt Date: 20240208
  Transmission Date: 20240410
  Serious: Yes (Death, Hospitalization, Congenital Anomaly, Other)
  Sender: FDA-Public Use
  Company Number: DE-BAXTER-2023BAX025246

PATIENT
  Age: 73 Year
  Sex: Male
  Weight: 65 kg

DRUGS (27)
  1. THALIDOMIDE [Suspect]
     Active Substance: THALIDOMIDE
     Indication: Product used for unknown indication
     Dosage: UNK
  2. DEXAMETHASONE [Suspect]
     Active Substance: DEXAMETHASONE
     Indication: Sepsis
     Dosage: UNK, AS A PART OF FIRST CYCLE OF TREATMENT
     Dates: start: 20221117
  3. DEXAMETHASONE [Suspect]
     Active Substance: DEXAMETHASONE
     Dates: start: 20230320, end: 20230320
  4. POMALIDOMIDE [Suspect]
     Active Substance: POMALIDOMIDE
     Indication: Product used for unknown indication
     Dosage: UNK, AS A PART OF FIRST CYCLE OF TREATEMNT
     Dates: start: 20221117
  5. DARATUMUMAB [Suspect]
     Active Substance: DARATUMUMAB
     Indication: Drug therapy
     Dosage: UNK, AS A PART OF FIRST CYCLE OF TREATEMNT
     Route: 042
     Dates: start: 20221117
  6. DARATUMUMAB [Suspect]
     Active Substance: DARATUMUMAB
     Indication: Plasma cell myeloma
     Route: 042
     Dates: start: 20221212
  7. DARATUMUMAB [Suspect]
     Active Substance: DARATUMUMAB
     Route: 042
     Dates: start: 20230204
  8. DARATUMUMAB [Suspect]
     Active Substance: DARATUMUMAB
     Dosage: 1120 MG
     Route: 042
     Dates: start: 20230224, end: 20230224
  9. DARATUMUMAB [Suspect]
     Active Substance: DARATUMUMAB
     Dosage: 1120 MG
     Route: 042
     Dates: start: 20230228, end: 20230228
  10. CARFILZOMIB [Suspect]
     Active Substance: CARFILZOMIB
     Indication: Plasma cell myeloma
  11. BORTEZOMIB [Suspect]
     Active Substance: BORTEZOMIB
     Indication: Drug therapy
     Dosage: UNK, AS A PART OF FIRST CYCLE OF TREATEMNT
     Route: 058
     Dates: start: 20221117
  12. BORTEZOMIB [Suspect]
     Active Substance: BORTEZOMIB
     Indication: Plasma cell myeloma
     Route: 058
     Dates: start: 20221228
  13. BORTEZOMIB [Suspect]
     Active Substance: BORTEZOMIB
     Route: 058
     Dates: start: 20230204
  14. BORTEZOMIB [Suspect]
     Active Substance: BORTEZOMIB
     Dosage: 3 MG
     Route: 058
     Dates: start: 20230224, end: 20230224
  15. BORTEZOMIB [Suspect]
     Active Substance: BORTEZOMIB
     Dosage: 3 MG
     Route: 058
     Dates: start: 20230228, end: 20230228
  16. ETOPOSIDE [Suspect]
     Active Substance: ETOPOSIDE
     Indication: Plasma cell myeloma
     Dosage: UNK
  17. CYCLOPHOSPHAMIDE [Suspect]
     Active Substance: CYCLOPHOSPHAMIDE
     Indication: Plasma cell myeloma
     Dosage: UNK
     Dates: start: 20221229, end: 20221231
  18. CYCLOPHOSPHAMIDE [Suspect]
     Active Substance: CYCLOPHOSPHAMIDE
     Indication: Salvage therapy
  19. DOXORUBICIN [Suspect]
     Active Substance: DOXORUBICIN
     Indication: Salvage therapy
     Dosage: UNK, AS A PART OF FIRST CYCLE OF TREATEMNT
     Dates: start: 20221117
  20. DOXORUBICIN [Suspect]
     Active Substance: DOXORUBICIN
     Indication: Plasma cell myeloma
     Dates: start: 20221229, end: 20221231
  21. MELPHALAN [Suspect]
     Active Substance: MELPHALAN
     Indication: Overdose
     Dosage: 95 MG
     Route: 042
     Dates: start: 20230310, end: 20230311
  22. TECLISTAMAB [Suspect]
     Active Substance: TECLISTAMAB
     Indication: Product used for unknown indication
     Dosage: AFTER CYCLOPHOSPHAMIDE AND DOXORUBICIN ADMINISTRATION
  23. MEROPENEM [Concomitant]
     Active Substance: MEROPENEM
     Indication: Bacterial infection
     Route: 042
     Dates: start: 20230321, end: 20230322
  24. MEROPENEM [Concomitant]
     Active Substance: MEROPENEM
     Indication: Sepsis
  25. TAZOBACTAM [Concomitant]
     Active Substance: TAZOBACTAM
     Indication: Sepsis
     Route: 042
     Dates: start: 20230320, end: 20230321
  26. ACYCLOVIR [Concomitant]
     Active Substance: ACYCLOVIR
     Indication: Sepsis
     Route: 042
     Dates: start: 20230320, end: 20230322
  27. PIPERACILLIN [Concomitant]
     Active Substance: PIPERACILLIN
     Indication: Sepsis
     Route: 042
     Dates: start: 20230320, end: 20230321

REACTIONS (14)
  - Sepsis [Fatal]
  - Tachycardia [Unknown]
  - General physical health deterioration [Unknown]
  - Pulmonary oedema [Recovered/Resolved]
  - Multiple organ dysfunction syndrome [Fatal]
  - Device related sepsis [Unknown]
  - Tachypnoea [Unknown]
  - Hypertension [Not Recovered/Not Resolved]
  - Pyrexia [Recovered/Resolved]
  - Renal failure [Not Recovered/Not Resolved]
  - Depressed level of consciousness [Unknown]
  - Aplasia [Fatal]
  - Pneumonia [Unknown]
  - Disturbance in attention [Unknown]

NARRATIVE: CASE EVENT DATE: 20221218
